FAERS Safety Report 19507051 (Version 1)
Quarter: 2021Q3

REPORT INFORMATION
  Report Type: Spontaneous
  Country: FR (occurrence: FR)
  Receive Date: 20210708
  Receipt Date: 20210708
  Transmission Date: 20211014
  Serious: Yes (Life-Threatening, Hospitalization)
  Sender: FDA-Public Use
  Company Number: FR-MYLANLABS-2021M1039387

PATIENT
  Age: 34 Year
  Sex: Male

DRUGS (5)
  1. PAROXETINE. [Concomitant]
     Active Substance: PAROXETINE
     Indication: MENTAL DISORDER
     Route: 065
  2. ZOLPIDEM [Concomitant]
     Active Substance: ZOLPIDEM TARTRATE
     Indication: MENTAL DISORDER
     Route: 065
  3. URBANIL [Suspect]
     Active Substance: CLOBAZAM
     Indication: MENTAL DISORDER
     Route: 065
  4. ALPRAZOLAM. [Concomitant]
     Active Substance: ALPRAZOLAM
     Indication: MENTAL DISORDER
     Dosage: UNK
     Route: 065
  5. BUPRENORPHINE. [Suspect]
     Active Substance: BUPRENORPHINE
     Indication: DRUG WITHDRAWAL SYNDROME
     Dosage: 6 MILLIGRAM/KILOGRAM,INTAKE OF 14 PILLS
     Route: 065

REACTIONS (7)
  - Extrapyramidal disorder [Unknown]
  - Muscle spasticity [Unknown]
  - Coma [Recovering/Resolving]
  - Loss of consciousness [Recovering/Resolving]
  - Intentional product misuse [Unknown]
  - Nystagmus [Unknown]
  - Miosis [Unknown]
